FAERS Safety Report 7489584-7 (Version None)
Quarter: 2011Q2

REPORT INFORMATION
  Report Type: 
  Country: None (occurrence: None)
  Receive Date: 20110519
  Receipt Date: 20110509
  Transmission Date: 20111010
  Serious: Yes (Hospitalization)
  Sender: FDA-Public Use
  Company Number: US-BIOGENIDEC-2010BI029729

PATIENT
  Age: 65 Year
  Sex: Female

DRUGS (1)
  1. AVONEX [Suspect]
     Indication: MULTIPLE SCLEROSIS
     Route: 030
     Dates: start: 19980116

REACTIONS (8)
  - LABORATORY TEST ABNORMAL [None]
  - HYPOTENSION [None]
  - FATIGUE [None]
  - BLOOD PRESSURE DECREASED [None]
  - SYNCOPE [None]
  - FALL [None]
  - ACUTE SINUSITIS [None]
  - LOSS OF CONSCIOUSNESS [None]
